FAERS Safety Report 7906893-5 (Version None)
Quarter: 2011Q4

REPORT INFORMATION
  Report Type: 
  Country: None (occurrence: None)
  Receive Date: 20111110
  Receipt Date: 20111106
  Transmission Date: 20120403
  Serious: Yes (Other)
  Sender: FDA-Public Use
  Company Number: JP-ABBOTT-11P-087-0871768-00

PATIENT
  Sex: Female

DRUGS (1)
  1. HUMIRA [Suspect]
     Indication: RHEUMATOID ARTHRITIS
     Route: 058

REACTIONS (5)
  - FALL [None]
  - OPTIC NERVE DISORDER [None]
  - GAIT DISTURBANCE [None]
  - VISUAL ACUITY REDUCED [None]
  - ARTHRALGIA [None]
